FAERS Safety Report 8377106-8 (Version None)
Quarter: 2012Q2

REPORT INFORMATION
  Report Type: 
  Country: None (occurrence: None)
  Receive Date: 20120522
  Receipt Date: 20120507
  Transmission Date: 20120825
  Serious: Yes (Other)
  Sender: FDA-Public Use
  Company Number: GB-WATSON-2012-05877

PATIENT
  Age: 33 Year
  Sex: Male

DRUGS (12)
  1. PEGINTERFERON ALFA-2A [Concomitant]
     Indication: HEPATITIS C
     Dosage: 180 UG, 1/WEEK
     Route: 058
     Dates: start: 20110516
  2. OMEPRAZOLE [Concomitant]
     Indication: DYSPEPSIA
     Dosage: 20 MG, UNKNOWN
     Route: 048
     Dates: start: 20101210
  3. CLOZAPINE [Suspect]
     Dosage: UNK
     Route: 048
     Dates: start: 20111025, end: 20120307
  4. RAMIPRIL [Suspect]
     Dosage: 5 MG, DAILY
     Route: 065
     Dates: start: 20120302
  5. RAMIPRIL [Suspect]
     Dosage: 10 MG, DAILY
     Route: 065
     Dates: start: 20120306, end: 20120309
  6. CLOZAPINE [Suspect]
     Indication: PRODUCT USED FOR UNKNOWN INDICATION
     Dosage: 100 MG, BID
     Route: 048
     Dates: start: 20120319, end: 20120401
  7. RAMIPRIL [Suspect]
     Indication: HYPERTENSION
     Dosage: 2.5 MG, DAILY
     Route: 065
     Dates: start: 20110822
  8. VENLAFAXINE [Concomitant]
     Indication: DEPRESSION
     Dosage: 300 MG, UNKNOWN
     Route: 048
     Dates: start: 20101217
  9. CALCICHEW D3 [Concomitant]
     Indication: HEPATITIS C
     Dosage: UNK
     Route: 048
     Dates: start: 20110503
  10. BECLOMETHASONE DIPROPIONATE [Concomitant]
     Indication: ASTHMA
     Dosage: 200 UG, BID
     Route: 065
     Dates: start: 20110525
  11. RIBAVIRIN [Suspect]
     Indication: HEPATITIS C
     Dosage: 1200 MG, UNKNOWN
     Route: 048
     Dates: start: 20110516
  12. MOVICOL                            /01625101/ [Concomitant]
     Indication: CONSTIPATION
     Dosage: 1 DF, TID
     Route: 048
     Dates: start: 20110427

REACTIONS (4)
  - NEUTROPHIL COUNT DECREASED [None]
  - DRUG INTERACTION [None]
  - WHITE BLOOD CELL COUNT DECREASED [None]
  - NEUTROPENIA [None]
